FAERS Safety Report 20299861 (Version 2)
Quarter: 2022Q1

REPORT INFORMATION
  Report Type: Spontaneous
  Country: US (occurrence: US)
  Receive Date: 20220105
  Receipt Date: 20220325
  Transmission Date: 20220423
  Serious: No
  Sender: FDA-Public Use
  Company Number: US-BIOGEN-2019BI00735344

PATIENT
  Sex: Female

DRUGS (17)
  1. TECFIDERA [Suspect]
     Active Substance: DIMETHYL FUMARATE
     Indication: Multiple sclerosis
     Dosage: TOOK FOR 7 DAYS
     Route: 048
     Dates: start: 20190501
  2. TECFIDERA [Suspect]
     Active Substance: DIMETHYL FUMARATE
     Dosage: STARTED ON DAY 8
     Route: 065
  3. TECFIDERA [Suspect]
     Active Substance: DIMETHYL FUMARATE
     Dosage: TOOK FOR 7 DAYS
     Dates: start: 20190501
  4. TECFIDERA [Suspect]
     Active Substance: DIMETHYL FUMARATE
     Route: 065
     Dates: start: 20190422
  5. AVONEX [Suspect]
     Active Substance: INTERFERON BETA-1A
     Indication: Multiple sclerosis
     Route: 030
  6. AVONEX [Suspect]
     Active Substance: INTERFERON BETA-1A
     Route: 030
     Dates: start: 20110131, end: 20200122
  7. AVONEX [Suspect]
     Active Substance: INTERFERON BETA-1A
  8. AVONEX [Suspect]
     Active Substance: INTERFERON BETA-1A
  9. AVONEX [Suspect]
     Active Substance: INTERFERON BETA-1A
  10. AVONEX [Suspect]
     Active Substance: INTERFERON BETA-1A
  11. AVONEX [Suspect]
     Active Substance: INTERFERON BETA-1A
  12. AVONEX [Suspect]
     Active Substance: INTERFERON BETA-1A
  13. AVONEX [Suspect]
     Active Substance: INTERFERON BETA-1A
  14. AVONEX [Suspect]
     Active Substance: INTERFERON BETA-1A
  15. AVONEX [Suspect]
     Active Substance: INTERFERON BETA-1A
  16. AVONEX [Suspect]
     Active Substance: INTERFERON BETA-1A
  17. AVONEX [Suspect]
     Active Substance: INTERFERON BETA-1A

REACTIONS (12)
  - Gastritis [Not Recovered/Not Resolved]
  - Retching [Not Recovered/Not Resolved]
  - Chills [Unknown]
  - Hyperhidrosis [Unknown]
  - Gastric disorder [Recovered/Resolved]
  - Hot flush [Not Recovered/Not Resolved]
  - Flushing [Not Recovered/Not Resolved]
  - Abdominal pain upper [Not Recovered/Not Resolved]
  - Diarrhoea [Not Recovered/Not Resolved]
  - Vomiting [Not Recovered/Not Resolved]
  - Nausea [Recovered/Resolved]
  - Dyspepsia [Recovered/Resolved]
